FAERS Safety Report 10891352 (Version 2)
Quarter: 2015Q2

REPORT INFORMATION
  Report Type: Spontaneous
  Country: US (occurrence: US)
  Receive Date: 20150306
  Receipt Date: 20150422
  Transmission Date: 20150821
  Serious: Yes (Other)
  Sender: FDA-Public Use
  Company Number: US-BEH-2015049247

PATIENT
  Age: 8 Year

DRUGS (1)
  1. VWF PRODUCT [Suspect]
     Active Substance: VON WILLEBRAND FACTOR HUMAN
     Indication: VON WILLEBRAND^S DISEASE

REACTIONS (3)
  - Von Willebrand^s factor inhibition [Unknown]
  - Hypersensitivity [Unknown]
  - Dyspnoea [Unknown]
